FAERS Safety Report 5523361-9 (Version None)
Quarter: 2007Q4

REPORT INFORMATION
  Report Type: 
  Country: None (occurrence: None)
  Receive Date: 20071121
  Receipt Date: 20071114
  Transmission Date: 20080405
  Serious: Yes (Hospitalization)
  Sender: FDA-Public Use
  Company Number: B0494652A

PATIENT
  Age: 41 Year
  Sex: Female

DRUGS (3)
  1. FLOLAN [Suspect]
     Indication: PULMONARY HYPERTENSION
     Route: 042
     Dates: start: 20011010
  2. TRACLEER [Concomitant]
     Route: 048
  3. FUROSEMIDE [Concomitant]
     Route: 048

REACTIONS (4)
  - BLOOD CORTICOTROPHIN DECREASED [None]
  - BLOOD CORTISOL DECREASED [None]
  - HYPOPITUITARISM [None]
  - THROMBOCYTOPENIA [None]
